FAERS Safety Report 6442338-2 (Version None)
Quarter: 2009Q4

REPORT INFORMATION
  Report Type: 
  Country: None (occurrence: None)
  Receive Date: 20091112
  Receipt Date: 20091029
  Transmission Date: 20100525
  Serious: Yes (Hospitalization)
  Sender: FDA-Public Use
  Company Number: 2009EU004168

PATIENT
  Age: 43 Year
  Sex: Male

DRUGS (4)
  1. PROGRAF [Suspect]
     Indication: LIVER TRANSPLANT
     Dosage: 1 MG, BID, ORAL; 0.5 MG, BID, ORAL
     Route: 048
     Dates: start: 20080911, end: 20080928
  2. PROGRAF [Suspect]
     Indication: LIVER TRANSPLANT
     Dosage: 1 MG, BID, ORAL; 0.5 MG, BID, ORAL
     Route: 048
     Dates: start: 20091003, end: 20091005
  3. FLUCONAZOLE [Suspect]
     Indication: CHORIORETINITIS
     Dosage: 600 MG, UID/QD, ORAL;  400 MG, UID/QD
     Route: 048
     Dates: start: 20090925, end: 20090925
  4. FLUCONAZOLE [Suspect]
     Indication: CHORIORETINITIS
     Dosage: 600 MG, UID/QD, ORAL;  400 MG, UID/QD
     Route: 048
     Dates: start: 20090926, end: 20091008

REACTIONS (3)
  - DRUG INTERACTION [None]
  - IMMUNOSUPPRESSANT DRUG LEVEL INCREASED [None]
  - RENAL FAILURE [None]
